FAERS Safety Report 20442721 (Version 2)
Quarter: 2022Q1

REPORT INFORMATION
  Report Type: Spontaneous
  Country: US (occurrence: US)
  Receive Date: 20220208
  Receipt Date: 20220211
  Transmission Date: 20220423
  Serious: No
  Sender: FDA-Public Use
  Company Number: US-NOVARTISTESTPH-NVSC2022US026131

PATIENT
  Sex: Male

DRUGS (1)
  1. TRAVOPROST [Suspect]
     Active Substance: TRAVOPROST
     Indication: Product used for unknown indication
     Dosage: 1 DRP, QD, (EACH EYE)
     Route: 065
     Dates: start: 202108

REACTIONS (3)
  - Eye pruritus [Unknown]
  - Vision blurred [Unknown]
  - Drug hypersensitivity [Unknown]
